FAERS Safety Report 8358180-1 (Version None)
Quarter: 2012Q2

REPORT INFORMATION
  Report Type: 
  Country: None (occurrence: None)
  Receive Date: 20120514
  Receipt Date: 20120504
  Transmission Date: 20120825
  Serious: Yes (Hospitalization, Congenital Anomaly)
  Sender: FDA-Public Use
  Company Number: US-GLAXOSMITHKLINE-A0950702A

PATIENT
  Sex: Male
  Weight: 3.9 kg

DRUGS (4)
  1. PAXIL [Suspect]
     Indication: MOOD SWINGS
     Route: 064
  2. ZOFRAN [Concomitant]
  3. PHENERGAN [Concomitant]
  4. WELLBUTRIN SR [Concomitant]

REACTIONS (5)
  - CONGENITAL PULMONARY HYPERTENSION [None]
  - ATRIAL SEPTAL DEFECT [None]
  - FOETAL EXPOSURE DURING PREGNANCY [None]
  - PATENT DUCTUS ARTERIOSUS [None]
  - PERSISTENT FOETAL CIRCULATION [None]
